FAERS Safety Report 5962729-3 (Version None)
Quarter: 2008Q4

REPORT INFORMATION
  Report Type: 
  Country: None (occurrence: None)
  Receive Date: 20081120
  Receipt Date: 20081106
  Transmission Date: 20090506
  Serious: Yes (Death)
  Sender: FDA-Public Use
  Company Number: PIR# 0811014

PATIENT
  Age: 7 Year
  Sex: Female

DRUGS (1)
  1. STERILE WATER [Suspect]

REACTIONS (7)
  - BLOOD SODIUM DECREASED [None]
  - BRAIN OEDEMA [None]
  - CONVULSION [None]
  - DISORIENTATION [None]
  - IRRITABILITY [None]
  - LETHARGY [None]
  - RESPIRATORY ARREST [None]
